FAERS Safety Report 21347357 (Version 4)
Quarter: 2023Q4

REPORT INFORMATION
  Report Type: Report from Study
  Country: CA (occurrence: CA)
  Receive Date: 20220919
  Receipt Date: 20231124
  Transmission Date: 20240110
  Serious: Yes (Other)
  Sender: FDA-Public Use
  Company Number: CA-NOVARTISPH-PHHY2019CA011019

PATIENT
  Age: 69 Year
  Sex: Female
  Weight: 69.5 kg

DRUGS (13)
  1. COSENTYX [Suspect]
     Active Substance: SECUKINUMAB
     Indication: Psoriasis
     Dosage: 300 MG
     Route: 058
     Dates: start: 20181001, end: 20181101
  2. COSENTYX [Suspect]
     Active Substance: SECUKINUMAB
     Dosage: 300 MG
     Route: 058
     Dates: start: 20181101
  3. COSENTYX [Suspect]
     Active Substance: SECUKINUMAB
     Dosage: QMO
     Route: 058
  4. CLOBETASOL [Concomitant]
     Active Substance: CLOBETASOL
     Indication: Product used for unknown indication
     Dosage: UNK
     Route: 065
     Dates: start: 2017
  5. CLOBETASOL [Concomitant]
     Active Substance: CLOBETASOL
     Dosage: 1 DPP, BID
     Route: 061
     Dates: start: 20201201
  6. CLOBETASOL [Concomitant]
     Active Substance: CLOBETASOL
     Dosage: 1 DPP, PRN
     Route: 061
  7. CLOBETASOL [Concomitant]
     Active Substance: CLOBETASOL
     Dosage: UNK
     Route: 065
     Dates: start: 20220908
  8. BETAMETHASONE\CALCIPOTRIENE [Concomitant]
     Active Substance: BETAMETHASONE\CALCIPOTRIENE
     Indication: Product used for unknown indication
     Dosage: UNK
     Route: 065
     Dates: start: 2017
  9. BETAMETHASONE\CALCIPOTRIENE [Concomitant]
     Active Substance: BETAMETHASONE\CALCIPOTRIENE
     Dosage: 1 DPP, BID
     Route: 061
     Dates: start: 20201201
  10. METHOTREXATE [Concomitant]
     Active Substance: METHOTREXATE
     Indication: Product used for unknown indication
     Dosage: UNK
     Route: 065
     Dates: start: 20171003
  11. METHOTREXATE [Concomitant]
     Active Substance: METHOTREXATE
     Dosage: 15 MG, QW
     Route: 048
     Dates: start: 20200207
  12. ENSTILAR [Concomitant]
     Active Substance: BETAMETHASONE DIPROPIONATE\CALCIPOTRIENE HYDRATE
     Indication: Product used for unknown indication
     Dosage: 1 DPP, BID
     Route: 061
     Dates: start: 20190326
  13. DOXEPIN [Concomitant]
     Active Substance: DOXEPIN
     Indication: Product used for unknown indication
     Dosage: UNK
     Route: 065
     Dates: start: 20200929, end: 202303

REACTIONS (9)
  - Parkinson^s disease [Not Recovered/Not Resolved]
  - Cellulitis [Not Recovered/Not Resolved]
  - Dermatillomania [Recovered/Resolved]
  - Concomitant disease aggravated [Recovered/Resolved]
  - Cholelithiasis [Recovering/Resolving]
  - Dizziness [Recovered/Resolved]
  - Dermatitis [Not Recovered/Not Resolved]
  - Peripheral swelling [Recovering/Resolving]
  - Muscular weakness [Not Recovered/Not Resolved]

NARRATIVE: CASE EVENT DATE: 20181110
